FAERS Safety Report 6229774-4 (Version None)
Quarter: 2009Q2

REPORT INFORMATION
  Report Type: 
  Country: None (occurrence: None)
  Receive Date: 20090615
  Receipt Date: 20090605
  Transmission Date: 20091009
  Serious: Yes (Other)
  Sender: FDA-Public Use
  Company Number: PHEH2009US05313

PATIENT
  Sex: Female

DRUGS (10)
  1. FAMVIR [Suspect]
     Indication: HERPES ZOSTER
     Dosage: 500 MG, TID
     Route: 048
     Dates: start: 20090520, end: 20090521
  2. VICODIN [Concomitant]
  3. CELEBREX [Concomitant]
     Dosage: 200 MG, QD
     Dates: start: 20010101
  4. METOPROLOL SUCCINATE [Concomitant]
     Dosage: 50 MG, QD
     Dates: start: 20080101
  5. ZEGERID [Concomitant]
     Dosage: 40 MG, QD
     Dates: start: 20070101
  6. ASPIRIN [Concomitant]
     Dosage: 81 MG, QD
     Dates: start: 19940101
  7. SPIRIVA [Concomitant]
     Dosage: 18 MCG QD
     Dates: start: 20040101
  8. CENTRUM SILVER [Concomitant]
  9. CITRICAL [Concomitant]
  10. IRON [Concomitant]
     Dosage: UNK
     Dates: start: 20020101

REACTIONS (1)
  - SWELLING FACE [None]
